FAERS Safety Report 7319496-0 (Version None)
Quarter: 2011Q1

REPORT INFORMATION
  Report Type: 
  Country: None (occurrence: None)
  Receive Date: 20110216
  Receipt Date: 20110208
  Transmission Date: 20110831
  Serious: Yes (Life-Threatening, Other)
  Sender: FDA-Public Use
  Company Number: GER/UKI/11/0017373

PATIENT
  Age: 74 Year
  Sex: Male
  Weight: 85 kg

DRUGS (11)
  1. NICORANDIL (NICORANDIL) [Concomitant]
  2. METRONIDAZOLE [Suspect]
     Indication: PRODUCT USED FOR UNKNOWN INDICATION
     Dosage: 500 MG, INTRAVENOUS
     Route: 042
     Dates: start: 20110125, end: 20110125
  3. MEROPENEM [Suspect]
     Indication: PRODUCT USED FOR UNKNOWN INDICATION
     Dosage: 500 MG, INTRAVENOUS
     Route: 042
     Dates: start: 20110125, end: 20110125
  4. SERTRALINE (SERTRALINE) [Suspect]
     Indication: DEPRESSION
     Dosage: ORAL
     Route: 048
     Dates: start: 20101201, end: 20110125
  5. CANDESARTAN CILEXETIL [Concomitant]
  6. ASPIRIN [Concomitant]
  7. ATORVASTATIN (ATORVASTATIN) [Concomitant]
  8. BISOPROLOL (BISOPROLOL FUMARATE) [Concomitant]
  9. CLARITHROMYCIN [Concomitant]
  10. FELODIPINE [Concomitant]
  11. ISOSORBIDE MONONITRATE [Concomitant]

REACTIONS (10)
  - ACUTE HEPATIC FAILURE [None]
  - RESPIRATORY FAILURE [None]
  - HEPATOMEGALY [None]
  - DYSPNOEA [None]
  - PAIN [None]
  - CONFUSIONAL STATE [None]
  - CARDIAC FAILURE [None]
  - INTERNATIONAL NORMALISED RATIO INCREASED [None]
  - SEPSIS [None]
  - RENAL FAILURE ACUTE [None]
